FAERS Safety Report 6751964-2 (Version None)
Quarter: 2010Q2

REPORT INFORMATION
  Report Type: 
  Country: None (occurrence: None)
  Receive Date: 20100602
  Receipt Date: 20100521
  Transmission Date: 20101027
  Serious: Yes (Other)
  Sender: FDA-Public Use
  Company Number: JP-PFIZER INC-2010051605

PATIENT
  Age: 51 Year
  Sex: Female
  Weight: 49.5 kg

DRUGS (4)
  1. AZULFIDINE [Suspect]
     Indication: RHEUMATOID ARTHRITIS
     Dosage: 500 MG, 2X/DAY
     Route: 048
     Dates: start: 20100305
  2. RIMATIL [Concomitant]
     Dosage: UNK
     Route: 048
     Dates: start: 20100305
  3. SELBEX [Concomitant]
     Dosage: UNK
     Route: 048
     Dates: start: 20100305
  4. MOBIC [Concomitant]
     Dosage: UNK
     Route: 048
     Dates: start: 20100305

REACTIONS (6)
  - DRUG ERUPTION [None]
  - ERYTHEMA [None]
  - NAUSEA [None]
  - OCULAR HYPERAEMIA [None]
  - PYREXIA [None]
  - SWELLING FACE [None]
